FAERS Safety Report 4388341-8 (Version None)
Quarter: 2004Q3

REPORT INFORMATION
  Report Type: 
  Country: None (occurrence: None)
  Receive Date: 20040701
  Receipt Date: 20040616
  Transmission Date: 20050211
  Serious: Yes (Hospitalization)
  Sender: FDA-Public Use
  Company Number: JP-MERCK-0406USA01944

PATIENT
  Age: 76 Year
  Sex: Male

DRUGS (6)
  1. CLARITHROMYCIN [Concomitant]
     Route: 048
     Dates: start: 20040605
  2. MEDICON [Concomitant]
     Route: 048
     Dates: start: 20040605
  3. PEPCID RPD [Suspect]
     Indication: ABDOMINAL PAIN
     Route: 048
     Dates: start: 20040612, end: 20040612
  4. HERBS (UNSPECIFIED) [Concomitant]
     Route: 048
     Dates: start: 20040605
  5. THIATON [Concomitant]
     Indication: ABDOMINAL PAIN
     Route: 048
     Dates: start: 20040615, end: 20040615
  6. THIATON [Concomitant]
     Route: 048
     Dates: start: 20040612, end: 20040612

REACTIONS (1)
  - DRUG ERUPTION [None]
